FAERS Safety Report 9999297 (Version 1)
Quarter: 2014Q1

REPORT INFORMATION
  Report Type: Spontaneous
  Country: IT (occurrence: None)
  Receive Date: 20140310
  Receipt Date: 20140310
  Transmission Date: 20141002
  Serious: Yes (Hospitalization)
  Sender: FDA-Public Use
  Company Number: DSM-2014-00218

PATIENT
  Age: 77 Year
  Sex: Male
  Weight: 65 kg

DRUGS (2)
  1. PLAUNAC [Suspect]
     Indication: HYPERTENSION
     Route: 048
     Dates: start: 20131224, end: 20140102
  2. ADENURIC (FEBUXOSTAT) (80 MILLIGRAM, TABLET) (FEBUXOSTAT) [Concomitant]

REACTIONS (2)
  - Incorrect dose administered [None]
  - Presyncope [None]
